FAERS Safety Report 6265466-3 (Version None)
Quarter: 2009Q3

REPORT INFORMATION
  Report Type: 
  Country: None (occurrence: None)
  Receive Date: 20090713
  Receipt Date: 20090709
  Transmission Date: 20100115
  Serious: Yes (Life-Threatening)
  Sender: FDA-Public Use
  Company Number: SZ-ASTRAZENECA-2009SE04421

PATIENT
  Age: 32 Year
  Sex: Female

DRUGS (1)
  1. SEROQUEL [Suspect]
     Indication: DISSOCIATIVE FUGUE
     Route: 048
     Dates: start: 20090619

REACTIONS (1)
  - LONG QT SYNDROME [None]
